FAERS Safety Report 5902597-9 (Version None)
Quarter: 2008Q3

REPORT INFORMATION
  Report Type: 
  Country: None (occurrence: None)
  Receive Date: 20080926
  Receipt Date: 20080925
  Transmission Date: 20090109
  Serious: Yes (Other)
  Sender: FDA-Public Use
  Company Number: 1000001015

PATIENT
  Age: 31 Year
  Sex: Male

DRUGS (2)
  1. LEXAPRO [Suspect]
     Indication: DEPRESSION
     Dosage: 10 MG (10 MG, 1 IN 1 D), ORAL
     Route: 048
     Dates: start: 20080601, end: 20080821
  2. ALCOHOL [Suspect]
     Dosage: CONSUMED 6 BEERS
     Route: 048
     Dates: start: 20080820, end: 20080820

REACTIONS (5)
  - AGGRESSION [None]
  - ALCOHOL POISONING [None]
  - PHYSICAL ASSAULT [None]
  - SPOUSAL ABUSE [None]
  - TREATMENT NONCOMPLIANCE [None]
